FAERS Safety Report 9989807 (Version 1)
Quarter: 2014Q1

REPORT INFORMATION
  Report Type: Report from Study
  Country: US (occurrence: US)
  Receive Date: 20140310
  Receipt Date: 20140310
  Transmission Date: 20141002
  Serious: No
  Sender: FDA-Public Use
  Company Number: US-ABBVIE-13P-163-1134033-00

PATIENT
  Age: 51 Year
  Sex: Female
  Weight: 72.19 kg

DRUGS (3)
  1. HUMIRA [Suspect]
     Indication: PSORIASIS
     Dates: start: 20130808
  2. HUMIRA [Suspect]
     Dates: start: 20130815
  3. B 12 SHOTS [Concomitant]
     Indication: PRODUCT USED FOR UNKNOWN INDICATION

REACTIONS (3)
  - Device malfunction [Unknown]
  - Laryngitis [Not Recovered/Not Resolved]
  - Infection [Recovering/Resolving]
